FAERS Safety Report 15559962 (Version 1)
Quarter: 2018Q4

REPORT INFORMATION
  Report Type: Spontaneous
  Country: US (occurrence: US)
  Receive Date: 20181027
  Receipt Date: 20181027
  Transmission Date: 20190205
  Serious: Yes (Life-Threatening, Other)
  Sender: FDA-Public Use
  Company Number: None

PATIENT
  Age: 39 Year
  Sex: Female
  Weight: 72 kg

DRUGS (1)
  1. THYROID, PORCINE. [Suspect]
     Active Substance: THYROID, PORCINE

REACTIONS (2)
  - Mental disorder [None]
  - Weight increased [None]

NARRATIVE: CASE EVENT DATE: 20180621
